FAERS Safety Report 25717767 (Version 1)
Quarter: 2025Q3

REPORT INFORMATION
  Report Type: Report from Study
  Country: GB (occurrence: GB)
  Receive Date: 20250822
  Receipt Date: 20250822
  Transmission Date: 20251021
  Serious: Yes (Life-Threatening, Other)
  Sender: MYLAN
  Company Number: GB-002147023-NVSC2021GB218293

PATIENT
  Sex: Female
  Weight: 84 kg

DRUGS (104)
  1. CITALOPRAM [Suspect]
     Active Substance: CITALOPRAM
     Indication: Product used for unknown indication
  2. CITALOPRAM [Suspect]
     Active Substance: CITALOPRAM
     Route: 065
  3. CITALOPRAM [Suspect]
     Active Substance: CITALOPRAM
     Route: 065
  4. CITALOPRAM [Suspect]
     Active Substance: CITALOPRAM
  5. CITALOPRAM [Suspect]
     Active Substance: CITALOPRAM
     Route: 065
  6. CITALOPRAM [Suspect]
     Active Substance: CITALOPRAM
     Route: 065
  7. CITALOPRAM [Suspect]
     Active Substance: CITALOPRAM
  8. CITALOPRAM [Suspect]
     Active Substance: CITALOPRAM
  9. CITALOPRAM [Suspect]
     Active Substance: CITALOPRAM
     Dates: start: 20210211, end: 20210212
  10. CITALOPRAM [Suspect]
     Active Substance: CITALOPRAM
     Route: 065
     Dates: start: 20210211, end: 20210212
  11. CITALOPRAM [Suspect]
     Active Substance: CITALOPRAM
     Dates: start: 20210211, end: 20210212
  12. CITALOPRAM [Suspect]
     Active Substance: CITALOPRAM
     Route: 065
     Dates: start: 20210211, end: 20210212
  13. ZOPICLONE [Suspect]
     Active Substance: ZOPICLONE
     Indication: Product used for unknown indication
     Dates: start: 20220601, end: 20220605
  14. ZOPICLONE [Suspect]
     Active Substance: ZOPICLONE
     Route: 065
     Dates: start: 20220601, end: 20220605
  15. ZOPICLONE [Suspect]
     Active Substance: ZOPICLONE
     Route: 065
     Dates: start: 20220601, end: 20220605
  16. ZOPICLONE [Suspect]
     Active Substance: ZOPICLONE
     Dates: start: 20220601, end: 20220605
  17. COSENTYX [Suspect]
     Active Substance: SECUKINUMAB
     Indication: Psoriasis
     Dosage: 300 MILLIGRAM, MONTHLY (QMO)
     Dates: start: 20170411
  18. COSENTYX [Suspect]
     Active Substance: SECUKINUMAB
     Dosage: 300 MILLIGRAM, MONTHLY (QMO)
     Route: 042
     Dates: start: 20170411
  19. COSENTYX [Suspect]
     Active Substance: SECUKINUMAB
     Dosage: 300 MILLIGRAM, MONTHLY (QMO)
     Route: 042
     Dates: start: 20170411
  20. COSENTYX [Suspect]
     Active Substance: SECUKINUMAB
     Dosage: 300 MILLIGRAM, MONTHLY (QMO)
     Dates: start: 20170411
  21. ACETAMINOPHEN [Suspect]
     Active Substance: ACETAMINOPHEN
     Indication: Product used for unknown indication
  22. ACETAMINOPHEN [Suspect]
     Active Substance: ACETAMINOPHEN
     Route: 065
  23. ACETAMINOPHEN [Suspect]
     Active Substance: ACETAMINOPHEN
     Route: 065
  24. ACETAMINOPHEN [Suspect]
     Active Substance: ACETAMINOPHEN
  25. LYSINE HYDROCHLORIDE [Concomitant]
     Active Substance: LYSINE HYDROCHLORIDE
  26. LYSINE HYDROCHLORIDE [Concomitant]
     Active Substance: LYSINE HYDROCHLORIDE
     Route: 065
  27. LYSINE HYDROCHLORIDE [Concomitant]
     Active Substance: LYSINE HYDROCHLORIDE
     Route: 065
  28. LYSINE HYDROCHLORIDE [Concomitant]
     Active Substance: LYSINE HYDROCHLORIDE
  29. CHOLECALCIFEROL [Concomitant]
     Active Substance: CHOLECALCIFEROL
  30. CHOLECALCIFEROL [Concomitant]
     Active Substance: CHOLECALCIFEROL
     Route: 065
  31. CHOLECALCIFEROL [Concomitant]
     Active Substance: CHOLECALCIFEROL
     Route: 065
  32. CHOLECALCIFEROL [Concomitant]
     Active Substance: CHOLECALCIFEROL
  33. DEXPANTHENOL [Concomitant]
     Active Substance: DEXPANTHENOL
  34. DEXPANTHENOL [Concomitant]
     Active Substance: DEXPANTHENOL
     Route: 065
  35. DEXPANTHENOL [Concomitant]
     Active Substance: DEXPANTHENOL
     Route: 065
  36. DEXPANTHENOL [Concomitant]
     Active Substance: DEXPANTHENOL
  37. NICOTINAMIDE [Concomitant]
     Active Substance: NIACINAMIDE
  38. NICOTINAMIDE [Concomitant]
     Active Substance: NIACINAMIDE
     Route: 065
  39. NICOTINAMIDE [Concomitant]
     Active Substance: NIACINAMIDE
     Route: 065
  40. NICOTINAMIDE [Concomitant]
     Active Substance: NIACINAMIDE
  41. OMEPRAZOLE [Concomitant]
     Active Substance: OMEPRAZOLE
     Indication: Product used for unknown indication
  42. OMEPRAZOLE [Concomitant]
     Active Substance: OMEPRAZOLE
     Route: 065
  43. OMEPRAZOLE [Concomitant]
     Active Substance: OMEPRAZOLE
     Route: 065
  44. OMEPRAZOLE [Concomitant]
     Active Substance: OMEPRAZOLE
  45. METFORMIN [Concomitant]
     Active Substance: METFORMIN HYDROCHLORIDE
     Indication: Product used for unknown indication
  46. METFORMIN [Concomitant]
     Active Substance: METFORMIN HYDROCHLORIDE
     Route: 065
  47. METFORMIN [Concomitant]
     Active Substance: METFORMIN HYDROCHLORIDE
     Route: 065
  48. METFORMIN [Concomitant]
     Active Substance: METFORMIN HYDROCHLORIDE
  49. LOSARTAN [Concomitant]
     Active Substance: LOSARTAN
     Indication: Product used for unknown indication
  50. LOSARTAN [Concomitant]
     Active Substance: LOSARTAN
     Route: 065
  51. LOSARTAN [Concomitant]
     Active Substance: LOSARTAN
     Route: 065
  52. LOSARTAN [Concomitant]
     Active Substance: LOSARTAN
  53. CELECOXIB [Concomitant]
     Active Substance: CELECOXIB
     Indication: Product used for unknown indication
     Dates: start: 20161111, end: 20170111
  54. CELECOXIB [Concomitant]
     Active Substance: CELECOXIB
     Route: 065
     Dates: start: 20161111, end: 20170111
  55. CELECOXIB [Concomitant]
     Active Substance: CELECOXIB
     Route: 065
     Dates: start: 20161111, end: 20170111
  56. CELECOXIB [Concomitant]
     Active Substance: CELECOXIB
     Dates: start: 20161111, end: 20170111
  57. Cetraben [Concomitant]
     Indication: Product used for unknown indication
  58. Cetraben [Concomitant]
     Route: 065
  59. Cetraben [Concomitant]
     Route: 065
  60. Cetraben [Concomitant]
  61. MELATONIN [Concomitant]
     Active Substance: MELATONIN
     Indication: Product used for unknown indication
     Dates: start: 20170627, end: 20170730
  62. MELATONIN [Concomitant]
     Active Substance: MELATONIN
     Route: 065
     Dates: start: 20170627, end: 20170730
  63. MELATONIN [Concomitant]
     Active Substance: MELATONIN
     Route: 065
     Dates: start: 20170627, end: 20170730
  64. MELATONIN [Concomitant]
     Active Substance: MELATONIN
     Dates: start: 20170627, end: 20170730
  65. ENSTILAR [Concomitant]
     Active Substance: BETAMETHASONE DIPROPIONATE\CALCIPOTRIENE HYDRATE
     Indication: Product used for unknown indication
  66. ENSTILAR [Concomitant]
     Active Substance: BETAMETHASONE DIPROPIONATE\CALCIPOTRIENE HYDRATE
     Route: 065
  67. ENSTILAR [Concomitant]
     Active Substance: BETAMETHASONE DIPROPIONATE\CALCIPOTRIENE HYDRATE
     Route: 065
  68. ENSTILAR [Concomitant]
     Active Substance: BETAMETHASONE DIPROPIONATE\CALCIPOTRIENE HYDRATE
  69. BEZAFIBRATE [Concomitant]
     Active Substance: BEZAFIBRATE
     Indication: Product used for unknown indication
  70. BEZAFIBRATE [Concomitant]
     Active Substance: BEZAFIBRATE
     Route: 065
  71. BEZAFIBRATE [Concomitant]
     Active Substance: BEZAFIBRATE
     Route: 065
  72. BEZAFIBRATE [Concomitant]
     Active Substance: BEZAFIBRATE
  73. VITAMIN D [Concomitant]
     Active Substance: VITAMIN D NOS
     Indication: Product used for unknown indication
  74. VITAMIN D [Concomitant]
     Active Substance: VITAMIN D NOS
     Route: 065
  75. VITAMIN D [Concomitant]
     Active Substance: VITAMIN D NOS
     Route: 065
  76. VITAMIN D [Concomitant]
     Active Substance: VITAMIN D NOS
  77. VITAMIN E [Concomitant]
     Active Substance: .ALPHA.-TOCOPHEROL
     Indication: Product used for unknown indication
  78. VITAMIN E [Concomitant]
     Active Substance: .ALPHA.-TOCOPHEROL
     Route: 065
  79. VITAMIN E [Concomitant]
     Active Substance: .ALPHA.-TOCOPHEROL
     Route: 065
  80. VITAMIN E [Concomitant]
     Active Substance: .ALPHA.-TOCOPHEROL
  81. VAGIFEM [Concomitant]
     Active Substance: ESTRADIOL
     Indication: Product used for unknown indication
  82. VAGIFEM [Concomitant]
     Active Substance: ESTRADIOL
     Route: 065
  83. VAGIFEM [Concomitant]
     Active Substance: ESTRADIOL
     Route: 065
  84. VAGIFEM [Concomitant]
     Active Substance: ESTRADIOL
  85. ZOLEDRONIC ACID [Concomitant]
     Active Substance: ZOLEDRONIC ACID
     Indication: Product used for unknown indication
     Dates: start: 20210202, end: 20210202
  86. ZOLEDRONIC ACID [Concomitant]
     Active Substance: ZOLEDRONIC ACID
     Dates: start: 20210202, end: 20210202
  87. ZOLEDRONIC ACID [Concomitant]
     Active Substance: ZOLEDRONIC ACID
     Route: 065
     Dates: start: 20210202, end: 20210202
  88. ZOLEDRONIC ACID [Concomitant]
     Active Substance: ZOLEDRONIC ACID
     Route: 065
     Dates: start: 20210202, end: 20210202
  89. ZOLEDRONIC ACID [Concomitant]
     Active Substance: ZOLEDRONIC ACID
  90. ZOLEDRONIC ACID [Concomitant]
     Active Substance: ZOLEDRONIC ACID
  91. ZOLEDRONIC ACID [Concomitant]
     Active Substance: ZOLEDRONIC ACID
     Route: 065
  92. ZOLEDRONIC ACID [Concomitant]
     Active Substance: ZOLEDRONIC ACID
     Route: 065
  93. DENOSUMAB [Concomitant]
     Active Substance: DENOSUMAB
     Indication: Product used for unknown indication
     Dates: start: 20210208, end: 20220804
  94. DENOSUMAB [Concomitant]
     Active Substance: DENOSUMAB
     Route: 065
     Dates: start: 20210208, end: 20220804
  95. DENOSUMAB [Concomitant]
     Active Substance: DENOSUMAB
     Route: 065
     Dates: start: 20210208, end: 20220804
  96. DENOSUMAB [Concomitant]
     Active Substance: DENOSUMAB
     Dates: start: 20210208, end: 20220804
  97. BETAMETHASONE DIPROPIONATE [Concomitant]
     Active Substance: BETAMETHASONE DIPROPIONATE
     Indication: Product used for unknown indication
     Dates: start: 20170804, end: 20170825
  98. BETAMETHASONE DIPROPIONATE [Concomitant]
     Active Substance: BETAMETHASONE DIPROPIONATE
     Route: 065
     Dates: start: 20170804, end: 20170825
  99. BETAMETHASONE DIPROPIONATE [Concomitant]
     Active Substance: BETAMETHASONE DIPROPIONATE
     Route: 065
     Dates: start: 20170804, end: 20170825
  100. BETAMETHASONE DIPROPIONATE [Concomitant]
     Active Substance: BETAMETHASONE DIPROPIONATE
     Dates: start: 20170804, end: 20170825
  101. MEBEVERINE [Concomitant]
     Active Substance: MEBEVERINE
     Indication: Product used for unknown indication
  102. MEBEVERINE [Concomitant]
     Active Substance: MEBEVERINE
     Route: 065
  103. MEBEVERINE [Concomitant]
     Active Substance: MEBEVERINE
     Route: 065
  104. MEBEVERINE [Concomitant]
     Active Substance: MEBEVERINE

REACTIONS (4)
  - Suicide attempt [Recovered/Resolved]
  - Feeling abnormal [Recovered/Resolved]
  - Headache [Recovered/Resolved]
  - Accidental overdose [Recovered/Resolved]

NARRATIVE: CASE EVENT DATE: 20210211
